FAERS Safety Report 7005394-9 (Version None)
Quarter: 2010Q3

REPORT INFORMATION
  Report Type: 
  Country: None (occurrence: None)
  Receive Date: 20100920
  Receipt Date: 20100920
  Transmission Date: 20110219
  Serious: Yes (Disabling, Other)
  Sender: FDA-Public Use
  Company Number: None

PATIENT
  Age: 14 Year
  Sex: Male
  Weight: 54.4316 kg

DRUGS (14)
  1. DESYREL [Suspect]
     Indication: SLEEP DISORDER THERAPY
     Dosage: 50 MG 2X AT BEDTIME PO
     Route: 048
     Dates: start: 20070101, end: 20100708
  2. ZOLOFT [Suspect]
     Indication: ANXIETY
     Dosage: 50 MG 1X IN MORNING PO
     Route: 048
     Dates: start: 20100401, end: 20100708
  3. ALBUTEROL [Concomitant]
  4. SINGULAIR [Concomitant]
  5. VENTOLIN [Concomitant]
  6. PANTANESE [Concomitant]
  7. METHYLPHENID [Concomitant]
  8. METHYLIN ER [Concomitant]
  9. SEROQUEL [Concomitant]
  10. AZITHROMYCIN [Concomitant]
  11. CLONIDINE [Concomitant]
  12. RITALIN LA [Concomitant]
  13. CONCERTA [Concomitant]
  14. TRAZODONE HCL [Concomitant]

REACTIONS (14)
  - ABNORMAL BEHAVIOUR [None]
  - DRUG INEFFECTIVE [None]
  - DYSPNOEA [None]
  - GENERALISED ANXIETY DISORDER [None]
  - IMPULSE-CONTROL DISORDER [None]
  - INITIAL INSOMNIA [None]
  - NIGHTMARE [None]
  - PARASOMNIA [None]
  - PERIODIC LIMB MOVEMENT DISORDER [None]
  - SLEEP APNOEA SYNDROME [None]
  - SLEEP TERROR [None]
  - SOMNAMBULISM [None]
  - SOMNOLENCE [None]
  - UPPER AIRWAY RESISTANCE SYNDROME [None]
